FAERS Safety Report 12460467 (Version 2)
Quarter: 2016Q3

REPORT INFORMATION
  Report Type: Spontaneous
  Country: DE (occurrence: DE)
  Receive Date: 20160613
  Receipt Date: 20160718
  Transmission Date: 20161109
  Serious: Yes (Hospitalization)
  Sender: FDA-Public Use
  Company Number: DE-ELI_LILLY_AND_COMPANY-DE201606001121

PATIENT
  Age: 87 Year
  Sex: Female

DRUGS (5)
  1. VITAMIN D [Concomitant]
     Active Substance: CHOLECALCIFEROL
  2. VALSARTAN. [Concomitant]
     Active Substance: VALSARTAN
  3. IBUPROFEN. [Concomitant]
     Active Substance: IBUPROFEN
  4. FORSTEO [Suspect]
     Active Substance: TERIPARATIDE
     Indication: SPINAL FRACTURE
     Dosage: UNK, UNKNOWN
     Route: 065
  5. NOVALGIN [Concomitant]
     Active Substance: METAMIZOLE SODIUM

REACTIONS (3)
  - Neuralgia [Unknown]
  - Thrombosis [Recovering/Resolving]
  - Thrombophlebitis [Recovering/Resolving]
